FAERS Safety Report 5876688-5 (Version None)
Quarter: 2008Q3

REPORT INFORMATION
  Report Type: 
  Country: None (occurrence: None)
  Receive Date: 20080908
  Receipt Date: 20080827
  Transmission Date: 20090109
  Serious: No
  Sender: FDA-Public Use
  Company Number: LIT-08-0015-W

PATIENT
  Age: 20 Year
  Sex: Male
  Weight: 75 kg

DRUGS (1)
  1. MIDAZOLAM HCL [Suspect]
     Dosage: 4MG OVER 30 MINUTES

REACTIONS (2)
  - MYOCLONUS [None]
  - PSYCHOTIC DISORDER [None]
